FAERS Safety Report 6827739-2 (Version None)
Quarter: 2010Q3

REPORT INFORMATION
  Report Type: 
  Country: None (occurrence: None)
  Receive Date: 20100709
  Receipt Date: 20070125
  Transmission Date: 20110219
  Serious: No
  Sender: FDA-Public Use
  Company Number: US-PFIZER INC-2007007385

PATIENT
  Sex: Male
  Weight: 95.25 kg

DRUGS (3)
  1. CHANTIX [Suspect]
     Indication: SMOKING CESSATION THERAPY
     Dates: start: 20061224
  2. CRESTOR [Interacting]
     Indication: BLOOD CHOLESTEROL INCREASED
     Dates: start: 20051031
  3. LISINOPRIL [Concomitant]

REACTIONS (3)
  - DRUG INTERACTION [None]
  - NIGHTMARE [None]
  - SLEEP DISORDER [None]
